FAERS Safety Report 8339091-4 (Version None)
Quarter: 2012Q2

REPORT INFORMATION
  Report Type: 
  Country: None (occurrence: None)
  Receive Date: 20120507
  Receipt Date: 20120501
  Transmission Date: 20120825
  Serious: No
  Sender: FDA-Public Use
  Company Number: US-PFIZER INC-2012107491

PATIENT
  Sex: Female

DRUGS (2)
  1. NORVASC [Suspect]
     Dosage: UNK
  2. XALATAN [Suspect]
     Indication: EYE DISORDER
     Dosage: UNK

REACTIONS (2)
  - HYPERTENSION [None]
  - EYE DISORDER [None]
